FAERS Safety Report 17183694 (Version 1)
Quarter: 2019Q4

REPORT INFORMATION
  Report Type: Spontaneous
  Country: MY (occurrence: MY)
  Receive Date: 20191220
  Receipt Date: 20191220
  Transmission Date: 20200122
  Serious: Yes (Other)
  Sender: FDA-Public Use
  Company Number: MY-PFIZER INC-2019544209

PATIENT
  Age: 41 Year
  Sex: Female

DRUGS (1)
  1. ANZATAX (PACLITAXEL) [Suspect]
     Active Substance: PACLITAXEL
     Indication: OVARIAN CANCER
     Dosage: 262 MG, 1X/DAY
     Route: 042

REACTIONS (5)
  - Tonic convulsion [Recovered/Resolved]
  - Rhonchi [Recovered/Resolved]
  - Blood pressure immeasurable [Recovered/Resolved]
  - Oxygen saturation decreased [Recovered/Resolved]
  - Loss of consciousness [Recovered/Resolved]
